FAERS Safety Report 8801218 (Version 1)
Quarter: 2012Q4

REPORT INFORMATION
  Report Type: 
  Country: US (occurrence: US)
  Receive Date: 20120920
  Receipt Date: 20120920
  Transmission Date: 20130627
  Serious: Yes (Hospitalization, Other)
  Sender: FDA-Public Use
  Company Number: CHPA2012US019883

PATIENT
  Age: 66 Year
  Sex: Female

DRUGS (5)
  1. EXCEDRIN EXTRA STRENGTH [Suspect]
     Indication: HEADACHE
     Dosage: 2 DF, EVERY 4 to 6 HOURS A DAY
     Route: 048
  2. EXCEDRIN EXTRA STRENGTH [Suspect]
     Dosage: Unk, PRN
     Route: 048
     Dates: end: 2004
  3. ALEVE                              /00256202/ [Concomitant]
     Dosage: Unk, Unk
  4. IBUPROFEN [Concomitant]
     Dosage: Unk, Unk
  5. BAYER PLUS EXTRA STRENGTH [Concomitant]
     Dosage: Unk, Unk

REACTIONS (4)
  - Nerve injury [Not Recovered/Not Resolved]
  - Accident [Recovered/Resolved]
  - Bedridden [Recovered/Resolved]
  - Incorrect drug administration duration [Unknown]
